FAERS Safety Report 17865609 (Version 3)
Quarter: 2020Q3

REPORT INFORMATION
  Report Type: Report from Study
  Country: HK (occurrence: HK)
  Receive Date: 20200605
  Receipt Date: 20200710
  Transmission Date: 20201103
  Serious: Yes (Death)
  Sender: FDA-Public Use
  Company Number: HK-PFIZER INC-2020215796

PATIENT
  Age: 73 Year
  Sex: Female

DRUGS (2)
  1. HYDROCORTISONE SODIUM SUCCINATE [Suspect]
     Active Substance: HYDROCORTISONE SODIUM SUCCINATE
     Dosage: 4 MG/KG, EVERY 4 HRS (HIGHER DAILY DOSE)
  2. RIBAVIRIN. [Suspect]
     Active Substance: RIBAVIRIN
     Indication: CORONAVIRUS INFECTION
     Dosage: 4 MG/KG, 3X/DAY (EVERY 8 H)
     Route: 042

REACTIONS (4)
  - Respiratory failure [Fatal]
  - Off label use [Fatal]
  - Cardiac arrest [Fatal]
  - Drug ineffective for unapproved indication [Fatal]
